FAERS Safety Report 11033680 (Version 2)
Quarter: 2015Q2

REPORT INFORMATION
  Report Type: Spontaneous
  Country: US (occurrence: US)
  Receive Date: 20150415
  Receipt Date: 20150525
  Transmission Date: 20150821
  Serious: Yes (Other)
  Sender: FDA-Public Use
  Company Number: US-JNJFOC-20140503603

PATIENT

DRUGS (2)
  1. XARELTO [Suspect]
     Active Substance: RIVAROXABAN
     Indication: EMBOLISM VENOUS
     Route: 048
     Dates: start: 2014
  2. HEPARIN [Suspect]
     Active Substance: HEPARIN SODIUM
     Indication: EMBOLISM VENOUS
     Route: 042

REACTIONS (1)
  - Post procedural haemorrhage [Unknown]
